FAERS Safety Report 23681912 (Version 1)
Quarter: 2024Q1

REPORT INFORMATION
  Report Type: Spontaneous
  Country: GB (occurrence: GB)
  Receive Date: 20240328
  Receipt Date: 20240328
  Transmission Date: 20240410
  Serious: Yes (Other)
  Sender: FDA-Public Use
  Company Number: GB-MHRA-ADR 28603987

PATIENT
  Sex: Female

DRUGS (1)
  1. AMOXICILLIN [Suspect]
     Active Substance: AMOXICILLIN
     Indication: Lower respiratory tract infection
     Dosage: 7 DAY COURSE
     Route: 065
     Dates: end: 20240311

REACTIONS (5)
  - Erythema [Unknown]
  - Rash papular [Unknown]
  - Rash pruritic [Unknown]
  - Sensitive skin [Unknown]
  - Wheezing [Unknown]
